FAERS Safety Report 9581853 (Version 2)
Quarter: 2013Q4

REPORT INFORMATION
  Report Type: Report from Study
  Country: US (occurrence: US)
  Receive Date: 20131002
  Receipt Date: 20131118
  Transmission Date: 20140711
  Serious: Yes (Other)
  Sender: FDA-Public Use
  Company Number: US-US-EMD SERONO, INC.-7240406

PATIENT
  Sex: Female
  Weight: 75 kg

DRUGS (4)
  1. REBIF [Suspect]
     Indication: RELAPSING-REMITTING MULTIPLE SCLEROSIS
     Route: 058
     Dates: start: 20120305
  2. ESCITALOPRAM [Concomitant]
     Indication: PAIN
     Route: 048
  3. GABAPENTIN [Concomitant]
     Indication: DEPRESSION
     Route: 048
  4. METHYLPHENIDATE [Concomitant]
     Indication: FATIGUE
     Route: 048

REACTIONS (1)
  - Hidradenitis [Recovered/Resolved]
